FAERS Safety Report 21407604 (Version 1)
Quarter: 2022Q4

REPORT INFORMATION
  Report Type: Spontaneous
  Country: US (occurrence: None)
  Receive Date: 20221004
  Receipt Date: 20221004
  Transmission Date: 20230113
  Serious: Yes (Life-Threatening, Hospitalization, Other)
  Sender: FDA-Public Use
  Company Number: None

PATIENT
  Age: 33 Year
  Sex: Female
  Weight: 75.6 kg

DRUGS (1)
  1. PRAZOSIN [Suspect]
     Active Substance: PRAZOSIN

REACTIONS (23)
  - Nightmare [None]
  - Insomnia [None]
  - Catatonia [None]
  - Sluggishness [None]
  - Pain [None]
  - Chest pain [None]
  - Brain oedema [None]
  - Impaired driving ability [None]
  - Fatigue [None]
  - Chest discomfort [None]
  - Night sweats [None]
  - Decreased appetite [None]
  - Dizziness [None]
  - Peripheral coldness [None]
  - Heart rate irregular [None]
  - Mydriasis [None]
  - Dehydration [None]
  - Neuralgia [None]
  - Headache [None]
  - Erythema [None]
  - Myalgia [None]
  - Muscle twitching [None]
  - Asthenia [None]

NARRATIVE: CASE EVENT DATE: 20220929
